FAERS Safety Report 19687061 (Version 1)
Quarter: 2021Q3

REPORT INFORMATION
  Report Type: Spontaneous
  Country: US (occurrence: US)
  Receive Date: 20210811
  Receipt Date: 20210811
  Transmission Date: 20211014
  Serious: No
  Sender: FDA-Public Use
  Company Number: US-PFIZER INC-2021880667

PATIENT
  Sex: Female

DRUGS (1)
  1. AMLODIPINE BESILATE [Suspect]
     Active Substance: AMLODIPINE BESYLATE
     Indication: BLOOD PRESSURE ABNORMAL
     Dosage: 2.5 MG, 2X/DAY (5 MG TABLET IN HALF TO TAKE 2.5MG IN THE MORNING AND 2.5MG IN THE NIGHT)
     Dates: start: 2005

REACTIONS (5)
  - Intentional product misuse [Unknown]
  - Dyspnoea [Unknown]
  - Drug intolerance [Unknown]
  - Malaise [Unknown]
  - Incorrect dose administered [Unknown]

NARRATIVE: CASE EVENT DATE: 2005
